FAERS Safety Report 23154151 (Version 2)
Quarter: 2023Q4

REPORT INFORMATION
  Report Type: Spontaneous
  Country: JP (occurrence: None)
  Receive Date: 20231107
  Receipt Date: 20231110
  Transmission Date: 20240110
  Serious: Yes (Other)
  Sender: FDA-Public Use
  Company Number: 2023A251518

PATIENT
  Age: 95 Year
  Sex: Female

DRUGS (10)
  1. ONDEXXYA [Suspect]
     Active Substance: ANDEXANET ALFA
     Indication: Subdural haematoma
     Dosage: 880.0MG UNKNOWN
     Route: 042
     Dates: start: 20231029, end: 20231029
  2. XARELTO [Concomitant]
     Active Substance: RIVAROXABAN
     Dosage: IN THE MORNING
     Route: 048
     Dates: start: 20231028
  3. METGLUCO [Concomitant]
     Active Substance: METFORMIN HYDROCHLORIDE
     Dosage: DOSE UNKNOWN
     Route: 048
  4. CANAGLIFLOZIN [Concomitant]
     Active Substance: CANAGLIFLOZIN
     Dosage: DOSE UNKNOWN
     Route: 048
  5. SAMSCA [Concomitant]
     Active Substance: TOLVAPTAN
     Dosage: DOSE UNKNOWN
     Route: 048
  6. LASIX [Concomitant]
     Active Substance: FUROSEMIDE
     Dosage: DOSE UNKNOWN
     Route: 048
  7. LANSOPRAZOLE [Concomitant]
     Active Substance: LANSOPRAZOLE
     Dosage: DOSE UNKNOWN
     Route: 048
  8. AMIODARONE HYDROCHLORIDE [Concomitant]
     Active Substance: AMIODARONE HYDROCHLORIDE
     Dosage: DOSE UNKNOWN
     Route: 048
  9. MAGNESIUM OXIDE [Concomitant]
     Active Substance: MAGNESIUM OXIDE
     Dosage: DOSE UNKNOWN
     Route: 048
  10. MINERAL PREPARATIONS [Concomitant]
     Dosage: DOSE UNKNOWN
     Route: 048

REACTIONS (1)
  - Brain oedema [Not Recovered/Not Resolved]

NARRATIVE: CASE EVENT DATE: 20231030
